FAERS Safety Report 5215286-3 (Version None)
Quarter: 2007Q1

REPORT INFORMATION
  Report Type: 
  Country: None (occurrence: None)
  Receive Date: 20070117
  Receipt Date: 20070109
  Transmission Date: 20070707
  Serious: Yes (Hospitalization)
  Sender: FDA-Public Use
  Company Number: MEDI-0005277

PATIENT
  Age: 10 Month
  Sex: 0

DRUGS (3)
  1. SYNAGIS [Suspect]
     Indication: ANTIVIRAL PROPHYLAXIS
     Dosage: 45 MG, INTRAMUSCULAR; 24 MG, INTRAMUSCULAR
     Route: 030
     Dates: start: 20060105, end: 20060301
  2. SYNAGIS [Suspect]
     Indication: ANTIVIRAL PROPHYLAXIS
     Dosage: 45 MG, INTRAMUSCULAR; 24 MG, INTRAMUSCULAR
     Route: 030
     Dates: start: 20060105
  3. SYNAGIS [Suspect]
     Indication: ANTIVIRAL PROPHYLAXIS
     Dosage: 45 MG, INTRAMUSCULAR; 24 MG, INTRAMUSCULAR
     Route: 030
     Dates: start: 20060206

REACTIONS (1)
  - BRONCHIOLITIS [None]
